FAERS Safety Report 4648899-8 (Version None)
Quarter: 2005Q2

REPORT INFORMATION
  Report Type: 
  Country: None (occurrence: None)
  Receive Date: 20050427
  Receipt Date: 20050412
  Transmission Date: 20051028
  Serious: Yes (Hospitalization, Other)
  Sender: FDA-Public Use
  Company Number: 05-000259

PATIENT
  Age: 70 Year
  Sex: Female

DRUGS (18)
  1. DURICEF [Suspect]
     Dosage: 500 MG
     Dates: start: 19920529
  2. DORYX [Suspect]
     Dosage: 100 MG,, ORAL
     Route: 048
     Dates: start: 19891024
  3. DORYX [Suspect]
     Dosage: 100 MG,, ORAL
     Route: 048
     Dates: start: 19920114
  4. DORYX [Suspect]
     Dosage: 100 MG,, ORAL
     Route: 048
     Dates: start: 19930320
  5. PROVERA [Suspect]
     Indication: HORMONE REPLACEMENT THERAPY
     Dosage: SEE IMAGE
     Route: 048
     Dates: start: 19910130, end: 19930327
  6. PROVERA [Suspect]
     Indication: HORMONE REPLACEMENT THERAPY
     Dosage: SEE IMAGE
     Route: 048
     Dates: start: 19930507, end: 19950929
  7. PREMARIN [Suspect]
     Indication: HORMONE REPLACEMENT THERAPY
     Dosage: 0.625 MG,, ORAL
     Route: 048
     Dates: start: 19910329, end: 19950929
  8. PREMPRO [Suspect]
     Indication: HORMONE REPLACEMENT THERAPY
     Dosage: 0.625 MG/2.5 MG, ,, ORAL
     Route: 048
     Dates: start: 19951028, end: 20020708
  9. CEPHALEXIN (CEFALEXIN) CAPSULE [Concomitant]
  10. PHENERGAN VC (PHENYLEPHRINE HYDROCHLORIDE, PROMETHAZINE HYDROCHLORIDE) [Concomitant]
  11. ERYTHROMYCIN TABLET [Concomitant]
  12. METHYLPREDNISOLONE [Concomitant]
  13. QUINAMM (QUININE SULFATE) TABLET [Concomitant]
  14. MAXZIDE (HYDROCHLOROTHIAZIDE, TRIAMTERENE) TABLET [Concomitant]
  15. ORUDIS [Concomitant]
  16. PEPCID [Concomitant]
  17. ANAPROX (NAPROXEN SODIUM) TABLET [Concomitant]
  18. MIDRIN (PARACETAMOL, ISOMETHEPTENE, DICHLORALPHENAZONE) CAPSULE [Concomitant]

REACTIONS (1)
  - BREAST CANCER FEMALE [None]
